FAERS Safety Report 5316616-4 (Version None)
Quarter: 2007Q2

REPORT INFORMATION
  Report Type: 
  Country: None (occurrence: None)
  Receive Date: 20070504
  Receipt Date: 20070425
  Transmission Date: 20071010
  Serious: Yes (Hospitalization, Other)
  Sender: FDA-Public Use
  Company Number: GB-JNJFOC-20070103943

PATIENT
  Sex: Female
  Weight: 63 kg

DRUGS (14)
  1. REMICADE [Suspect]
     Indication: RHEUMATOID ARTHRITIS
     Route: 042
  2. METHOTREXATE [Concomitant]
  3. FOLIC ACID [Concomitant]
  4. ATORVASTATIN CALCIUM [Concomitant]
  5. OMEPRAZOLE [Concomitant]
  6. AMLODIPINE [Concomitant]
  7. CO-CODAMOL [Concomitant]
  8. DICLOFENAC [Concomitant]
  9. ENALAPRIL [Concomitant]
  10. SIMVASTATIN [Concomitant]
  11. MERCAPTOPURINE [Concomitant]
  12. LEVOTHYROXINE SODIUM [Concomitant]
  13. HYDROFLUMETHIAZIDE [Concomitant]
  14. ETANERCEPT [Concomitant]

REACTIONS (3)
  - LETHARGY [None]
  - URINARY TRACT INFECTION [None]
  - VOMITING [None]
